FAERS Safety Report 18264873 (Version 1)
Quarter: 2020Q3

REPORT INFORMATION
  Report Type: Spontaneous
  Country: CA (occurrence: CA)
  Receive Date: 20200915
  Receipt Date: 20200915
  Transmission Date: 20201103
  Serious: Yes (Other)
  Sender: FDA-Public Use
  Company Number: CA-TEVA-2020-CA-1826907

PATIENT
  Age: 1 Day

DRUGS (1)
  1. DESOGESTREL/ETHINYL ESTRADIOL [Suspect]
     Active Substance: DESOGESTREL\ETHINYL ESTRADIOL
     Dosage: 1 DOSAGE FORMS DAILY;
     Route: 064

REACTIONS (1)
  - Premature baby [Unknown]
